FAERS Safety Report 7189530-X (Version None)
Quarter: 2010Q4

REPORT INFORMATION
  Report Type: 
  Country: None (occurrence: None)
  Receive Date: 20101223
  Receipt Date: 20101213
  Transmission Date: 20110411
  Serious: Yes (Death)
  Sender: FDA-Public Use
  Company Number: US-BIOGENIDEC-2010BI041928

PATIENT
  Age: 49 Year
  Sex: Female

DRUGS (2)
  1. AVONEX [Suspect]
     Indication: MULTIPLE SCLEROSIS
     Route: 030
     Dates: start: 20080901
  2. AVONEX [Suspect]
     Route: 030
     Dates: start: 20000201

REACTIONS (5)
  - ARTERIOSCLEROSIS [None]
  - CEREBRAL HAEMORRHAGE [None]
  - DIABETES MELLITUS [None]
  - INTRACRANIAL ANEURYSM [None]
  - RUPTURED CEREBRAL ANEURYSM [None]
